FAERS Safety Report 19904819 (Version 2)
Quarter: 2022Q1

REPORT INFORMATION
  Report Type: Report from Study
  Country: US (occurrence: US)
  Receive Date: 20210930
  Receipt Date: 20220303
  Transmission Date: 20220423
  Serious: Yes (Other)
  Sender: FDA-Public Use
  Company Number: US-TAKEDA-2021TUS059606

PATIENT
  Sex: Male
  Weight: 63 kg

DRUGS (25)
  1. HUMAN IMMUNOGLOBULIN G [Suspect]
     Active Substance: HUMAN IMMUNOGLOBULIN G
     Indication: Immunodeficiency common variable
     Dosage: 15 GRAM, 1/WEEK
     Route: 058
     Dates: start: 20200420
  2. HUMAN IMMUNOGLOBULIN G [Suspect]
     Active Substance: HUMAN IMMUNOGLOBULIN G
     Dosage: 15 GRAM, 1/WEEK
     Route: 058
     Dates: start: 20200420
  3. HUMAN IMMUNOGLOBULIN G [Suspect]
     Active Substance: HUMAN IMMUNOGLOBULIN G
     Dosage: 15 GRAM, 1/WEEK
     Route: 058
     Dates: start: 20200420
  4. DIPHENHYDRAMINE [Concomitant]
     Active Substance: DIPHENHYDRAMINE
  5. VITAMIN D3 [Concomitant]
     Active Substance: CHOLECALCIFEROL
  6. EPINEPHRINE [Concomitant]
     Active Substance: EPINEPHRINE
  7. AZITHROMYCIN [Concomitant]
     Active Substance: AZITHROMYCIN
  8. CALCIUM CITRATE\CHOLECALCIFEROL [Concomitant]
     Active Substance: CALCIUM CITRATE\CHOLECALCIFEROL
  9. MINERALS\VITAMINS [Concomitant]
     Active Substance: MINERALS\VITAMINS
  10. FLUTICASONE PROPIONATE [Concomitant]
     Active Substance: FLUTICASONE PROPIONATE
  11. EPOGEN [Concomitant]
     Active Substance: ERYTHROPOIETIN
  12. PROVENTIL HFA [Concomitant]
     Active Substance: ALBUTEROL SULFATE
  13. ADVAIR HFA [Concomitant]
     Active Substance: FLUTICASONE PROPIONATE\SALMETEROL XINAFOATE
  14. ACETAMINOPHEN [Concomitant]
     Active Substance: ACETAMINOPHEN
  15. DRONABINOL [Concomitant]
     Active Substance: DRONABINOL
  16. RANITIDINE [Concomitant]
     Active Substance: RANITIDINE
  17. FERRIC POLYSACCHARIDE COMPLEX [Concomitant]
     Active Substance: FERRIC POLYSACCHARIDE COMPLEX
  18. FOLIC ACID [Concomitant]
     Active Substance: FOLIC ACID
  19. JAKAFI [Concomitant]
     Active Substance: RUXOLITINIB
  20. FUROSEMIDE [Concomitant]
     Active Substance: FUROSEMIDE
  21. VENOFER [Concomitant]
     Active Substance: IRON SUCROSE
  22. Lmx [Concomitant]
  23. FERROUS SULFATE [Concomitant]
     Active Substance: FERROUS SULFATE
  24. ACTEMRA [Concomitant]
     Active Substance: TOCILIZUMAB
  25. CALCIUM [Concomitant]
     Active Substance: CALCIUM

REACTIONS (2)
  - Upper limb fracture [Unknown]
  - Inappropriate schedule of product administration [Unknown]
